FAERS Safety Report 6263118 (Version 16)
Quarter: 2013Q3

REPORT INFORMATION
  Report Type: Spontaneous
  Country: US (occurrence: US)
  Receive Date: 20070316
  Receipt Date: 20130801
  Transmission Date: 20140515
  Serious: Yes (Death, Hospitalization, Disabling, Other)
  Sender: FDA-Public Use
  Company Number: PHEH2007US02902

PATIENT
  Age: 58 Year
  Sex: Female
  Weight: 73.02 kg

DRUGS (22)
  1. ZOMETA [Suspect]
     Indication: BREAST CANCER METASTATIC
     Dosage: 4 MG,
  2. AREDIA [Suspect]
     Dosage: 90 MG,
  3. FASLODEX [Concomitant]
  4. ARIMIDEX ^ZENECA^ [Concomitant]
  5. DIGOXIN [Concomitant]
  6. LISINOPRIL [Concomitant]
  7. SPIRONOLACTONE [Concomitant]
  8. IBUPROFEN [Concomitant]
  9. TORSEMIDE [Concomitant]
  10. TOPRAL [Concomitant]
  11. REGLAN [Concomitant]
  12. LYRICA [Concomitant]
  13. ATIVAN [Concomitant]
  14. LOVENOX [Concomitant]
  15. METOPROLOL TARTRATE [Concomitant]
  16. PREDNISONE [Concomitant]
  17. PANTOPRAZOLE [Concomitant]
  18. CYMBALTA [Concomitant]
  19. AMBIEN [Concomitant]
  20. TAMOXIFEN [Concomitant]
  21. SOLU-MEDROL [Concomitant]
  22. MYLANTA [Concomitant]

REACTIONS (114)
  - Trigeminal neuralgia [Unknown]
  - Constipation [Unknown]
  - Atelectasis [Unknown]
  - Vomiting [Unknown]
  - Dehydration [Unknown]
  - Asthenia [Unknown]
  - Cerebellar atrophy [Unknown]
  - Mental status changes [Recovered/Resolved]
  - Cardiomyopathy [Unknown]
  - Hypertension [Unknown]
  - Hypocalcaemia [Unknown]
  - Depression [Unknown]
  - Hypokalaemia [Unknown]
  - Anaemia of malignant disease [Unknown]
  - Radiation neuropathy [Unknown]
  - Metastases to spine [Unknown]
  - Epidermolysis [Unknown]
  - Dermal cyst [Unknown]
  - Acquired diaphragmatic eventration [Unknown]
  - Abdominal pain [Unknown]
  - Thrombocytopenia [Unknown]
  - Cor pulmonale chronic [Unknown]
  - Bronchitis [Unknown]
  - Arthritis [Unknown]
  - Osteonecrosis [Unknown]
  - Stomatitis [Unknown]
  - Confusional state [Unknown]
  - Aortic calcification [Unknown]
  - Intervertebral disc degeneration [Unknown]
  - Folliculitis [Unknown]
  - Neck mass [Unknown]
  - Sinus arrhythmia [Unknown]
  - Paraesthesia oral [Unknown]
  - Mastication disorder [Unknown]
  - Insomnia [Unknown]
  - Pneumothorax [Unknown]
  - Renal failure acute [Unknown]
  - Respiratory failure [Unknown]
  - Septic shock [Unknown]
  - Pneumonia [Unknown]
  - Malignant pleural effusion [Unknown]
  - Pleurisy [Unknown]
  - Lung consolidation [Unknown]
  - Bacterial infection [Unknown]
  - Neoplasm malignant [Unknown]
  - Rib fracture [Unknown]
  - Metabolic acidosis [Unknown]
  - Tobacco abuse [Unknown]
  - Bladder cancer [Unknown]
  - Emphysema [Unknown]
  - Hypoxia [Unknown]
  - Leukocytosis [Unknown]
  - Gastrointestinal haemorrhage [Unknown]
  - Pneumonitis [Unknown]
  - Pneumococcal infection [Unknown]
  - Exposed bone in jaw [Unknown]
  - Hepatic mass [Unknown]
  - Scoliosis [Unknown]
  - Osteoarthritis [Unknown]
  - Productive cough [Unknown]
  - Sepsis syndrome [Unknown]
  - Periodontitis [Unknown]
  - Tooth abscess [Unknown]
  - Death [Fatal]
  - Pneumococcal sepsis [Unknown]
  - Metastases to lung [Unknown]
  - Metastases to bone [Unknown]
  - Spinal disorder [Unknown]
  - Osteonecrosis of jaw [Unknown]
  - Hypoaesthesia [Unknown]
  - Facial pain [Unknown]
  - General physical health deterioration [Unknown]
  - Pain [Unknown]
  - Anxiety [Unknown]
  - Decreased interest [Unknown]
  - Dyspnoea [Unknown]
  - Chest pain [Unknown]
  - Cardiomegaly [Unknown]
  - Pleural fibrosis [Unknown]
  - Cardiac failure congestive [Unknown]
  - Pain in jaw [Unknown]
  - Tooth disorder [Unknown]
  - Oral disorder [Unknown]
  - Pleural effusion [Unknown]
  - Asthma [Unknown]
  - Uterine fibrosis [Unknown]
  - Rotator cuff syndrome [Unknown]
  - Cervical radiculopathy [Unknown]
  - Spinal osteoarthritis [Unknown]
  - Osteolysis [Unknown]
  - Cystocele [Unknown]
  - Arthralgia [Unknown]
  - Back pain [Unknown]
  - Pulmonary congestion [Unknown]
  - Lymphadenopathy mediastinal [Unknown]
  - Lung infiltration [Unknown]
  - Metaplasia [Unknown]
  - Hyperplasia [Unknown]
  - Ventricular hypokinesia [Unknown]
  - Mitral valve incompetence [Unknown]
  - Tricuspid valve incompetence [Unknown]
  - Pulmonary hypertension [Unknown]
  - Orthopnoea [Unknown]
  - Renal cyst [Unknown]
  - Lymphadenopathy [Unknown]
  - Pyrexia [Unknown]
  - Ovarian cyst [Unknown]
  - Hepatic steatosis [Unknown]
  - Musculoskeletal pain [Unknown]
  - Gastrooesophageal reflux disease [Unknown]
  - Haematuria [Unknown]
  - Calculus bladder [Unknown]
  - Tachycardia [Unknown]
  - Left ventricular hypertrophy [Unknown]
